FAERS Safety Report 4349357-0 (Version None)
Quarter: 2004Q2

REPORT INFORMATION
  Report Type: 
  Country: None (occurrence: None)
  Receive Date: 20040428
  Receipt Date: 20040401
  Transmission Date: 20050107
  Serious: Yes (Other)
  Sender: FDA-Public Use
  Company Number: PHBS2004BR04392

PATIENT
  Sex: Female

DRUGS (2)
  1. ZELMAC [Suspect]
     Indication: IRRITABLE BOWEL SYNDROME
     Dosage: 6 MG, Q12H
     Route: 048
     Dates: start: 20040401, end: 20040401
  2. SERTRALINE [Concomitant]
     Indication: DEPRESSION
     Dosage: 25 MG/DAY
     Route: 048

REACTIONS (4)
  - APHASIA [None]
  - DYSPNOEA [None]
  - DYSSTASIA [None]
  - TREMOR [None]
